FAERS Safety Report 23574942 (Version 2)
Quarter: 2024Q1

REPORT INFORMATION
  Report Type: Spontaneous
  Country: US (occurrence: US)
  Receive Date: 20240228
  Receipt Date: 20240306
  Transmission Date: 20240410
  Serious: No
  Sender: FDA-Public Use
  Company Number: US-HALEON-USCH2024010255

PATIENT
  Age: 41 Year
  Sex: Female

DRUGS (1)
  1. CHAPSTICK ACTIVE 2IN1 VARIETY PACK [Suspect]
     Active Substance: ZINC OXIDE
     Indication: Tanning
     Dosage: UNK

REACTIONS (2)
  - Lip discolouration [Unknown]
  - Lip disorder [Unknown]
